FAERS Safety Report 12417401 (Version 1)
Quarter: 2016Q2

REPORT INFORMATION
  Report Type: Spontaneous
  Country: DE (occurrence: DE)
  Receive Date: 20160530
  Receipt Date: 20160530
  Transmission Date: 20160815
  Serious: Yes (Other)
  Sender: FDA-Public Use
  Company Number: DE-JNJFOC-20140512741

PATIENT
  Age: 23 Year
  Sex: Male
  Weight: 60 kg

DRUGS (5)
  1. PREDNISOLON [Concomitant]
     Active Substance: PREDNISOLONE
     Indication: COLITIS ULCERATIVE
     Route: 065
  2. MESALAZINE [Concomitant]
     Active Substance: MESALAMINE
     Indication: COLITIS ULCERATIVE
     Route: 065
  3. REMICADE [Suspect]
     Active Substance: INFLIXIMAB
     Indication: COLITIS ULCERATIVE
     Dosage: 5 MG/KG
     Route: 042
     Dates: start: 20140509
  4. PANTOZOL [Concomitant]
     Active Substance: PANTOPRAZOLE SODIUM
     Indication: GASTRITIS
     Route: 065
  5. REMICADE [Suspect]
     Active Substance: INFLIXIMAB
     Indication: COLITIS ULCERATIVE
     Route: 042
     Dates: start: 20140523

REACTIONS (5)
  - Vasculitis [Unknown]
  - Pancreatitis acute [Recovered/Resolved]
  - Rhinitis [Unknown]
  - Helicobacter infection [Unknown]
  - Sialoadenitis [Recovered/Resolved]

NARRATIVE: CASE EVENT DATE: 20140509
